FAERS Safety Report 8251271-5 (Version None)
Quarter: 2012Q2

REPORT INFORMATION
  Report Type: 
  Country: None (occurrence: None)
  Receive Date: 20120402
  Receipt Date: 20120326
  Transmission Date: 20120825
  Serious: Yes (Other)
  Sender: FDA-Public Use
  Company Number: CZ-JNJFOC-20120311106

PATIENT
  Sex: Male

DRUGS (7)
  1. AKINETON [Concomitant]
     Route: 048
     Dates: start: 20120317
  2. AKINETON [Concomitant]
     Route: 048
     Dates: end: 20120313
  3. XEPLION [Suspect]
     Indication: SCHIZOPHRENIA, PARANOID TYPE
     Dosage: BEFORE NOON
     Route: 030
     Dates: start: 20120314
  4. RISPERIDONE [Concomitant]
     Indication: SCHIZOPHRENIA
     Route: 048
     Dates: end: 20120313
  5. SERTRALINI [Concomitant]
     Indication: DEPRESSION
     Route: 048
     Dates: start: 20090101
  6. CLONAZEPAM [Concomitant]
     Indication: SCHIZOPHRENIA
     Route: 048
     Dates: end: 20120313
  7. AKINETON [Concomitant]
     Route: 048
     Dates: start: 20120314, end: 20120316

REACTIONS (7)
  - APATHY [None]
  - ARTHRALGIA [None]
  - PYREXIA [None]
  - OEDEMA PERIPHERAL [None]
  - HEADACHE [None]
  - VERTIGO [None]
  - ANXIETY [None]
